FAERS Safety Report 7100084-6 (Version None)
Quarter: 2010Q4

REPORT INFORMATION
  Report Type: 
  Country: None (occurrence: None)
  Receive Date: 20101112
  Receipt Date: 20091021
  Transmission Date: 20110411
  Serious: No
  Sender: FDA-Public Use
  Company Number: A0813255A

PATIENT

DRUGS (1)
  1. COREG [Suspect]
     Route: 048

REACTIONS (2)
  - ADVERSE EVENT [None]
  - MUSCLE SPASMS [None]
